FAERS Safety Report 19807347 (Version 4)
Quarter: 2021Q4

REPORT INFORMATION
  Report Type: Spontaneous
  Country: DE (occurrence: DE)
  Receive Date: 20210908
  Receipt Date: 20211221
  Transmission Date: 20220303
  Serious: Yes (Other)
  Sender: FDA-Public Use
  Company Number: DE-BRISTOL-MYERS SQUIBB COMPANY-BMS-2021-072819

PATIENT

DRUGS (2)
  1. NIVOLUMAB [Suspect]
     Active Substance: NIVOLUMAB
     Indication: Product used for unknown indication
     Dosage: UNK
     Route: 065
  2. METHYLPREDNISOLONE [Concomitant]
     Active Substance: METHYLPREDNISOLONE
     Indication: Product used for unknown indication
     Dosage: UNK
     Route: 065

REACTIONS (11)
  - Hyperthyroidism [Unknown]
  - Hypothyroidism [Unknown]
  - Paraneoplastic syndrome [Unknown]
  - Amylase abnormal [Unknown]
  - Lipase abnormal [Unknown]
  - Transaminases increased [Unknown]
  - Electrolyte imbalance [Unknown]
  - Blood pressure fluctuation [Unknown]
  - Cutaneous symptom [Unknown]
  - Periorbital disorder [Unknown]
  - Conjunctivitis [Unknown]
